FAERS Safety Report 15800053 (Version 2)
Quarter: 2019Q1

REPORT INFORMATION
  Report Type: Report from Study
  Country: FR (occurrence: FR)
  Receive Date: 20190108
  Receipt Date: 20190116
  Transmission Date: 20190417
  Serious: Yes (Hospitalization, Other)
  Sender: FDA-Public Use
  Company Number: FR-SEATTLE GENETICS-2018SGN03509

PATIENT
  Age: 21 Year
  Sex: Male
  Weight: 50 kg

DRUGS (9)
  1. VALACICLOVIR [Concomitant]
     Active Substance: VALACYCLOVIR HYDROCHLORIDE
     Dosage: 500 MG, BID
     Route: 048
     Dates: start: 20171127
  2. CALCIUM FOLINATE [Concomitant]
     Active Substance: LEUCOVORIN CALCIUM
     Indication: PROPHYLAXIS
     Dosage: 25 MG, TID
     Route: 048
     Dates: start: 20171127
  3. SULFAMETHOXAZOLE, TRIMETHOPRIM [Concomitant]
     Active Substance: SULFAMETHOXAZOLE\TRIMETHOPRIM
     Indication: PROPHYLAXIS
     Dosage: UNK
     Route: 048
     Dates: start: 20181127
  4. CARBOPLATIN, ETOPOSIDE, IFOSFAMIDE [Concomitant]
     Indication: HODGKIN^S DISEASE
     Dosage: UNK
     Route: 065
     Dates: start: 20171127, end: 20180111
  5. BRENTUXIMAB VEDOTIN-MPI [Suspect]
     Active Substance: BRENTUXIMAB VEDOTIN
     Indication: HODGKIN^S DISEASE
     Dosage: UNK
     Route: 065
     Dates: start: 20171127
  6. BRENTUXIMAB VEDOTIN-MPI [Suspect]
     Active Substance: BRENTUXIMAB VEDOTIN
     Dosage: 90 MG, UNK
     Route: 065
     Dates: start: 20180516
  7. VALACICLOVIR [Concomitant]
     Active Substance: VALACYCLOVIR HYDROCHLORIDE
     Indication: PROPHYLAXIS
     Dosage: 500 MG, BID
     Route: 048
     Dates: start: 20171127
  8. LEVOTHYROXINE SODIUM. [Concomitant]
     Active Substance: LEVOTHYROXINE SODIUM
     Indication: THYROID HORMONE REPLACEMENT THERAPY
     Dosage: 75 UG, QD
     Route: 048
     Dates: start: 20160115
  9. PHENOXYMETHYLPENICILLIN [Concomitant]
     Active Substance: PENICILLIN V
     Indication: PROPHYLAXIS
     Dosage: UNK
     Route: 048
     Dates: start: 20171127

REACTIONS (21)
  - Meningitis streptococcal [Recovering/Resolving]
  - Monocyte count decreased [Unknown]
  - Nausea [Recovering/Resolving]
  - Lymphadenopathy [Unknown]
  - Blood sodium decreased [Unknown]
  - Oral herpes [Recovering/Resolving]
  - Headache [Not Recovered/Not Resolved]
  - Gamma-glutamyltransferase increased [Recovering/Resolving]
  - Hepatocellular injury [Recovering/Resolving]
  - Blood bicarbonate decreased [Unknown]
  - Pyrexia [Recovered/Resolved]
  - Red blood cell count decreased [Unknown]
  - Thrombocytopenia [Recovering/Resolving]
  - Streptococcal bacteraemia [Recovering/Resolving]
  - Neutrophil count increased [Unknown]
  - Blood chloride increased [Unknown]
  - Alanine aminotransferase increased [Recovering/Resolving]
  - Off label use [Recovering/Resolving]
  - Psychomotor skills impaired [Unknown]
  - Vomiting [Recovered/Resolved]
  - Lymphadenitis [Unknown]

NARRATIVE: CASE EVENT DATE: 201807
